FAERS Safety Report 8462315-X (Version None)
Quarter: 2012Q2

REPORT INFORMATION
  Report Type: 
  Country: None (occurrence: None)
  Receive Date: 20120625
  Receipt Date: 20120618
  Transmission Date: 20120825
  Serious: Yes (Hospitalization)
  Sender: FDA-Public Use
  Company Number: FR-PFIZER INC-2012145753

PATIENT
  Age: 48 Year
  Sex: Female

DRUGS (5)
  1. ATROPINE SULFATE [Concomitant]
     Indication: OLIGODENDROGLIOMA
     Dosage: 1 DF, UNK
     Route: 058
     Dates: start: 20120316, end: 20120316
  2. ZOFRAN [Concomitant]
     Indication: PREMEDICATION
     Dosage: 8 MG/4 ML, 1 DF, UNK
     Route: 042
     Dates: start: 20120316, end: 20120316
  3. IRINOTECAN HCL [Suspect]
     Indication: OLIGODENDROGLIOMA
     Dosage: 220 MG, CYCLIC
     Route: 042
     Dates: start: 20120316, end: 20120316
  4. AVASTIN [Concomitant]
     Indication: OLIGODENDROGLIOMA
     Dosage: 820 MG, UNK
     Route: 042
     Dates: start: 20120316, end: 20120316
  5. METHYLPREDNISOLONE MERCK [Concomitant]
     Indication: PREMEDICATION
     Dosage: 60 MG, UNK
     Route: 042
     Dates: start: 20120316, end: 20120316

REACTIONS (4)
  - HEADACHE [None]
  - HYPERHIDROSIS [None]
  - FEELING COLD [None]
  - VISUAL IMPAIRMENT [None]
